FAERS Safety Report 21472817 (Version 1)
Quarter: 2022Q4

REPORT INFORMATION
  Report Type: Spontaneous
  Country: FR (occurrence: FR)
  Receive Date: 20221018
  Receipt Date: 20221018
  Transmission Date: 20230113
  Serious: Yes (Death)
  Sender: FDA-Public Use
  Company Number: FR-SHIONOGI B.V.-2022000970

PATIENT

DRUGS (1)
  1. FETROJA [Suspect]
     Active Substance: CEFIDEROCOL SULFATE TOSYLATE
     Indication: Enterobacter infection
     Dosage: UNK
     Route: 065

REACTIONS (2)
  - Death [Fatal]
  - Drug resistance [Unknown]
